FAERS Safety Report 7990735-6 (Version None)
Quarter: 2011Q4

REPORT INFORMATION
  Report Type: 
  Country: None (occurrence: None)
  Receive Date: 20111219
  Receipt Date: 20111219
  Transmission Date: 20120403
  Serious: No
  Sender: FDA-Public Use
  Company Number: None

PATIENT
  Age: 51 Year
  Sex: Female
  Weight: 70.306 kg

DRUGS (1)
  1. CYMBALTA [Suspect]
     Indication: ANXIETY
     Dosage: 30 MG
     Route: 048
     Dates: start: 20111123, end: 20111215

REACTIONS (4)
  - BLOOD PRESSURE INCREASED [None]
  - DIARRHOEA [None]
  - HEART RATE INCREASED [None]
  - HYPERHIDROSIS [None]
